FAERS Safety Report 6920763-0 (Version None)
Quarter: 2010Q3

REPORT INFORMATION
  Report Type: 
  Country: None (occurrence: None)
  Receive Date: 20100804
  Receipt Date: 20100513
  Transmission Date: 20110219
  Serious: No
  Sender: FDA-Public Use
  Company Number: 2010-1650

PATIENT
  Age: 50 Year
  Sex: Female

DRUGS (1)
  1. SOMATULINE DEPOT [Suspect]
     Indication: ACROMEGALY
     Dosage: 90MG EVERY 28 DAYS (90 MG,1 IN 28 D), SUBCUTANEOUS
     Route: 058
     Dates: start: 20100505

REACTIONS (2)
  - FATIGUE [None]
  - MEMORY IMPAIRMENT [None]
